FAERS Safety Report 7457325-5 (Version None)
Quarter: 2011Q2

REPORT INFORMATION
  Report Type: 
  Country: None (occurrence: None)
  Receive Date: 20110504
  Receipt Date: 20101118
  Transmission Date: 20111010
  Serious: No
  Sender: FDA-Public Use
  Company Number: US-KINGPHARMUSA00001-K201001437

PATIENT
  Sex: Male

DRUGS (2)
  1. AVINZA [Suspect]
     Dosage: 30 MG, QD
  2. AVINZA [Suspect]
     Dosage: 60 MG, BID

REACTIONS (4)
  - ABDOMINAL DISCOMFORT [None]
  - DIARRHOEA [None]
  - DRUG WITHDRAWAL SYNDROME [None]
  - AGITATION [None]
